FAERS Safety Report 25081814 (Version 1)
Quarter: 2025Q1

REPORT INFORMATION
  Report Type: Spontaneous
  Country: US (occurrence: US)
  Receive Date: 20250317
  Receipt Date: 20250317
  Transmission Date: 20250408
  Serious: No
  Sender: TEVA
  Company Number: US-TEVA-VS-3304554

PATIENT
  Age: 50 Year
  Sex: Female

DRUGS (2)
  1. HYDROXOCOBALAMIN [Suspect]
     Active Substance: HYDROXOCOBALAMIN
     Indication: Pernicious anaemia
     Dosage: FORM STRENGTH: 1000MCG/ML
     Route: 065
  2. HYDROXOCOBALAMIN [Suspect]
     Active Substance: HYDROXOCOBALAMIN
     Indication: Pernicious anaemia
     Dosage: FORM STRENGTH: 1000MCG/ML
     Route: 065

REACTIONS (2)
  - Electric shock sensation [Recovered/Resolved]
  - Poor quality product administered [Unknown]

NARRATIVE: CASE EVENT DATE: 20250227
